FAERS Safety Report 7491971-8 (Version None)
Quarter: 2011Q2

REPORT INFORMATION
  Report Type: 
  Country: None (occurrence: None)
  Receive Date: 20110519
  Receipt Date: 20110510
  Transmission Date: 20111010
  Serious: Yes (Other)
  Sender: FDA-Public Use
  Company Number: US-ASTRAZENECA-2011SE28116

PATIENT
  Sex: Female

DRUGS (1)
  1. NEXIUM [Suspect]
     Route: 048

REACTIONS (5)
  - REGURGITATION [None]
  - BREAST CANCER [None]
  - MALIGNANT SPLENIC NEOPLASM [None]
  - EROSIVE OESOPHAGITIS [None]
  - HEPATIC NEOPLASM MALIGNANT [None]
